FAERS Safety Report 8595916-9 (Version None)
Quarter: 2012Q3

REPORT INFORMATION
  Report Type: 
  Country: None (occurrence: None)
  Receive Date: 20120815
  Receipt Date: 19910708
  Transmission Date: 20120928
  Serious: Yes (Other)
  Sender: FDA-Public Use
  Company Number: US-ROCHE-1099006

PATIENT
  Age: 64 Year
  Sex: Female

DRUGS (7)
  1. INSULIN [Concomitant]
  2. LOPRESSOR [Concomitant]
     Route: 048
  3. LIDOCAINE [Concomitant]
     Dosage: 2 MG PER MIN
  4. CAPTOPRIL [Concomitant]
     Route: 048
  5. ACTIVASE [Suspect]
     Indication: ACUTE MYOCARDIAL INFARCTION
  6. HEPARIN [Concomitant]
  7. NITROGLYCERIN [Concomitant]
     Route: 060

REACTIONS (7)
  - WEIGHT INCREASED [None]
  - MOTOR DYSFUNCTION [None]
  - LETHARGY [None]
  - CARDIAC FAILURE CONGESTIVE [None]
  - CEREBRAL HYPOPERFUSION [None]
  - DYSARTHRIA [None]
  - VOMITING [None]
